FAERS Safety Report 6466307-1 (Version None)
Quarter: 2009Q4

REPORT INFORMATION
  Report Type: 
  Country: None (occurrence: None)
  Receive Date: 20091202
  Receipt Date: 20091120
  Transmission Date: 20100525
  Serious: Yes (Other)
  Sender: FDA-Public Use
  Company Number: GB-BAYER-200827342GPV

PATIENT
  Age: 18 Month
  Sex: Female

DRUGS (9)
  1. ALEMTUZUMAB [Suspect]
     Indication: PROPHYLAXIS AGAINST GRAFT VERSUS HOST DISEASE
     Route: 065
  2. CYCLOSPORINE [Suspect]
     Indication: PROPHYLAXIS AGAINST GRAFT VERSUS HOST DISEASE
  3. METHOTREXATE [Suspect]
     Indication: PROPHYLAXIS AGAINST GRAFT VERSUS HOST DISEASE
  4. DAUNOXOME [Suspect]
     Indication: ACUTE MYELOID LEUKAEMIA
  5. CLOFARABINE [Suspect]
     Indication: ACUTE MYELOID LEUKAEMIA
  6. BUSULPHAN [Suspect]
     Indication: BONE MARROW CONDITIONING REGIMEN
     Dosage: DAYS -9 TO -6
     Route: 048
  7. CYCLOPHOSPHAMIDE [Suspect]
     Indication: BONE MARROW CONDITIONING REGIMEN
     Dosage: DAYS -4 TO -3
     Route: 065
  8. MELPHALAN [Suspect]
     Indication: BONE MARROW CONDITIONING REGIMEN
     Dosage: DAY -2
     Route: 065
  9. A-INTERFERON [Concomitant]
     Indication: IMMUNOMODULATORY THERAPY
     Route: 065

REACTIONS (3)
  - PNEUMONIA ADENOVIRAL [None]
  - PULMONARY HYPERTENSION [None]
  - RENAL IMPAIRMENT [None]
